FAERS Safety Report 6017886-X (Version None)
Quarter: 2008Q4

REPORT INFORMATION
  Report Type: 
  Country: None (occurrence: None)
  Receive Date: 20081223
  Receipt Date: 20081218
  Transmission Date: 20090506
  Serious: Yes (Hospitalization)
  Sender: FDA-Public Use
  Company Number: JP-JNJFOC-20081205387

PATIENT

DRUGS (5)
  1. ITRIZOLE [Suspect]
     Indication: INFECTION
     Route: 042
  2. ITRIZOLE [Suspect]
     Route: 048
  3. TACROLIMUS [Suspect]
     Indication: PROPHYLAXIS
     Route: 042
  4. TACROLIMUS [Suspect]
     Route: 048
  5. STEROIDS [Concomitant]
     Indication: PROPHYLAXIS

REACTIONS (2)
  - GRAFT VERSUS HOST DISEASE [None]
  - RENAL DISORDER [None]
